FAERS Safety Report 9895785 (Version 1)
Quarter: 2014Q1

REPORT INFORMATION
  Report Type: Spontaneous
  Country: US (occurrence: US)
  Receive Date: 20140213
  Receipt Date: 20140213
  Transmission Date: 20141002
  Serious: No
  Sender: FDA-Public Use
  Company Number: US-BRISTOL-MYERS SQUIBB COMPANY-19477728

PATIENT
  Age: 46 Year
  Sex: Female

DRUGS (9)
  1. ABATACEPT SUBQ INJECTION 125MG/ML [Suspect]
     Dosage: 1DF=125MG/ML
     Route: 058
  2. SYNTHROID [Concomitant]
     Dosage: TAB
  3. METOPROLOL [Concomitant]
     Dosage: TAB
  4. DIOVAN [Concomitant]
     Dosage: TAB
  5. FOLIC ACID [Concomitant]
     Dosage: TAB
  6. METHOTREXATE TABS [Concomitant]
  7. ARAVA [Concomitant]
  8. LEXAPRO [Concomitant]
  9. REQUIP [Concomitant]

REACTIONS (1)
  - Adverse event [Unknown]
